FAERS Safety Report 8859573 (Version 1)
Quarter: 2012Q4

REPORT INFORMATION
  Report Type: 
  Country: US (occurrence: US)
  Receive Date: 20121025
  Receipt Date: 20121025
  Transmission Date: 20130627
  Serious: Yes (Other)
  Sender: FDA-Public Use
  Company Number: US-PFIZER INC-2012265209

PATIENT
  Age: 9 Year
  Sex: Female

DRUGS (2)
  1. ZARONTIN [Suspect]
     Indication: CONVULSION
     Dosage: UNK
  2. KEPPRA [Concomitant]
     Dosage: UNK

REACTIONS (2)
  - Epilepsy [Unknown]
  - Drug ineffective [Unknown]
